FAERS Safety Report 17224269 (Version 1)
Quarter: 2020Q1

REPORT INFORMATION
  Report Type: Report from Study
  Country: US (occurrence: US)
  Receive Date: 20200102
  Receipt Date: 20200102
  Transmission Date: 20200409
  Serious: Yes (Hospitalization, Other)
  Sender: FDA-Public Use
  Company Number: US-BRISTOL-MYERS SQUIBB COMPANY-BMS-2019-125063

PATIENT
  Sex: Male
  Weight: 61.6 kg

DRUGS (3)
  1. IPILIMUMAB [Suspect]
     Active Substance: IPILIMUMAB
     Indication: PENILE CANCER
     Dosage: 62.8 MILLIGRAM
     Route: 042
     Dates: start: 20191107
  2. NIVOLUMAB [Suspect]
     Active Substance: NIVOLUMAB
     Indication: PENILE CANCER
     Dosage: 188.4 MILLIGRAM
     Route: 042
     Dates: start: 20191107
  3. CABOZANTINIB [Suspect]
     Active Substance: CABOZANTINIB
     Indication: PENILE CANCER
     Dosage: 880 MILLIGRAM
     Route: 048
     Dates: start: 20191107

REACTIONS (2)
  - Urinary tract infection [Unknown]
  - Pneumonia [Unknown]

NARRATIVE: CASE EVENT DATE: 20191218
